FAERS Safety Report 17122149 (Version 1)
Quarter: 2019Q4

REPORT INFORMATION
  Report Type: Spontaneous
  Country: CA (occurrence: CA)
  Receive Date: 20191206
  Receipt Date: 20191206
  Transmission Date: 20200122
  Serious: Yes (Life-Threatening)
  Sender: FDA-Public Use
  Company Number: CA-PFIZER INC-2019522236

PATIENT
  Age: 62 Year
  Weight: 44 kg

DRUGS (16)
  1. MAGNESIUM [Concomitant]
     Active Substance: MAGNESIUM
     Dosage: UNK
  2. MULTIVITAMINES AND MINERALS [Concomitant]
     Active Substance: MINERALS\VITAMINS
     Dosage: UNK
  3. DILTIAZEM. [Concomitant]
     Active Substance: DILTIAZEM
  4. MADOX [Concomitant]
     Dosage: UNK
  5. POTASSIUM CHLORIDE. [Concomitant]
     Active Substance: POTASSIUM CHLORIDE
     Dosage: UNK
  6. ASA [Concomitant]
     Active Substance: ASPIRIN
     Dosage: UNK
  7. GLYCERYL TRINITRATE [Concomitant]
     Active Substance: NITROGLYCERIN
     Dosage: UNK
  8. LASIX [Concomitant]
     Active Substance: FUROSEMIDE
     Dosage: UNK
  9. PHYTOMENADIONE [Suspect]
     Active Substance: PHYTONADIONE
     Dosage: 10 MG, UNK
     Route: 042
  10. CIPROFLOXACIN. [Concomitant]
     Active Substance: CIPROFLOXACIN
     Dosage: UNK
  11. FOLIC ACID. [Concomitant]
     Active Substance: FOLIC ACID
     Dosage: UNK
  12. POTASSIUM CHLORIDE. [Concomitant]
     Active Substance: POTASSIUM CHLORIDE
     Dosage: UNK
  13. BERIPLEX P/N [PLASMA PROTEIN FRACTION (HUMAN)] [Suspect]
     Active Substance: PLASMA PROTEIN FRACTION (HUMAN)
     Indication: PROCOAGULANT THERAPY
     Dosage: 1000 IU, SINGLE (TOTAL)
     Route: 065
  14. ALDACTONE [POTASSIUM CANRENOATE] [Concomitant]
     Active Substance: CANRENOATE POTASSIUM
     Dosage: UNK
  15. PANTOPRAZOLE [Concomitant]
     Active Substance: PANTOPRAZOLE
     Dosage: UNK
  16. TYLENOL [Concomitant]
     Active Substance: ACETAMINOPHEN

REACTIONS (11)
  - Chest pain [Unknown]
  - Feeling hot [Unknown]
  - Acute respiratory distress syndrome [Unknown]
  - Use of accessory respiratory muscles [Unknown]
  - Dizziness [Unknown]
  - Hypersensitivity [Unknown]
  - Anxiety [Unknown]
  - Dyspnoea [Unknown]
  - Panic reaction [Unknown]
  - Wheezing [Unknown]
  - Product administration error [Unknown]
